FAERS Safety Report 21976600 (Version 1)
Quarter: 2023Q1

REPORT INFORMATION
  Report Type: Spontaneous
  Country: DE (occurrence: DE)
  Receive Date: 20230210
  Receipt Date: 20230210
  Transmission Date: 20230418
  Serious: No
  Sender: FDA-Public Use
  Company Number: None

PATIENT
  Age: 60 Year
  Sex: Female
  Weight: 95 kg

DRUGS (4)
  1. EZETIMIBE [Suspect]
     Active Substance: EZETIMIBE
     Indication: Product used for unknown indication
     Dosage: 1 DOSAGE FORM (EVERY 1 DAY)
     Route: 048
     Dates: start: 2017, end: 20220131
  2. REPATHA [Suspect]
     Active Substance: EVOLOCUMAB
     Indication: Type IIa hyperlipidaemia
     Dosage: UNK
     Route: 065
  3. OPIPRAMOL [Concomitant]
     Active Substance: OPIPRAMOL
     Indication: Fibromyalgia
     Dosage: 1 DOSAGE FORM (EVERY 1 DAY)
     Route: 048
     Dates: start: 202111
  4. QUETIAPINE [Concomitant]
     Active Substance: QUETIAPINE
     Indication: Fibromyalgia
     Dosage: UNK
     Route: 048
     Dates: start: 202107

REACTIONS (1)
  - Transaminases increased [Not Recovered/Not Resolved]

NARRATIVE: CASE EVENT DATE: 20220131
